FAERS Safety Report 13378237 (Version 1)
Quarter: 2017Q1

REPORT INFORMATION
  Report Type: Spontaneous
  Country: FR (occurrence: FR)
  Receive Date: 20170328
  Receipt Date: 20170328
  Transmission Date: 20170429
  Serious: Yes (Other)
  Sender: FDA-Public Use
  Company Number: FR-SA-2017SA047497

PATIENT
  Age: 51 Year
  Sex: Female

DRUGS (5)
  1. TERCIAN [Concomitant]
     Active Substance: CYAMEMAZINE
  2. XALATAN [Concomitant]
     Active Substance: LATANOPROST
  3. KEPPRA [Concomitant]
     Active Substance: LEVETIRACETAM
  4. LEPONEX [Concomitant]
     Active Substance: CLOZAPINE
  5. AUBAGIO [Suspect]
     Active Substance: TERIFLUNOMIDE
     Indication: MULTIPLE SCLEROSIS
     Route: 048
     Dates: start: 201607

REACTIONS (1)
  - Anaemia [Not Recovered/Not Resolved]

NARRATIVE: CASE EVENT DATE: 20161212
